FAERS Safety Report 6430007-4 (Version None)
Quarter: 2009Q4

REPORT INFORMATION
  Report Type: 
  Country: None (occurrence: None)
  Receive Date: 20091104
  Receipt Date: 20091104
  Transmission Date: 20100525
  Serious: Yes (Life-Threatening, Hospitalization, Disabling, Other)
  Sender: FDA-Public Use
  Company Number: None

PATIENT
  Age: 71 Year
  Sex: Female
  Weight: 66.6788 kg

DRUGS (2)
  1. TRIAZOLAM 0.25MG 2 TABLET GREENSTONE-UP-JOHN [Suspect]
     Indication: DENTAL OPERATION
     Dosage: 1 TABLET AT OFFICE MORNING PO
     Route: 048
     Dates: start: 20080916, end: 20080916
  2. TRIAZOLAM 0.25MG 2 TABLET GREENSTONE-UP-JOHN [Suspect]
     Indication: PAIN
     Dosage: 1 TABLET AT OFFICE MORNING PO
     Route: 048
     Dates: start: 20080916, end: 20080916

REACTIONS (9)
  - BALANCE DISORDER [None]
  - BLOOD PRESSURE DECREASED [None]
  - DISORIENTATION [None]
  - DIZZINESS [None]
  - GAIT DISTURBANCE [None]
  - HERNIA [None]
  - INCOHERENT [None]
  - LOSS OF CONSCIOUSNESS [None]
  - SOMNOLENCE [None]
